FAERS Safety Report 8573529-2 (Version None)
Quarter: 2012Q2

REPORT INFORMATION
  Report Type: 
  Country: None (occurrence: None)
  Receive Date: 20120423
  Receipt Date: 20100707
  Transmission Date: 20120825
  Serious: Yes (Disabling, Other)
  Sender: FDA-Public Use
  Company Number: PHEH2009US16142

PATIENT
  Age: 76 Year
  Sex: Female
  Weight: 87.5 kg

DRUGS (18)
  1. FOLIC ACID [Concomitant]
  2. XYZAL [Concomitant]
  3. PERCOCET [Concomitant]
  4. DASATINIB (DASATINIB) [Concomitant]
  5. EXJADE [Suspect]
     Indication: HAEMOCHROMATOSIS
     Dosage: 2500 MG, QD, ORAL 3000 MG. QD, ORAL UNK, ORAL 500 MG, DAILY
     Route: 048
     Dates: start: 20080502, end: 20091016
  6. EXJADE [Suspect]
     Indication: IRON OVERLOAD
     Dosage: 2500 MG, QD, ORAL 3000 MG. QD, ORAL UNK, ORAL 500 MG, DAILY
     Route: 048
     Dates: start: 20080502, end: 20091016
  7. EXJADE [Suspect]
     Indication: HAEMOCHROMATOSIS
     Dosage: 2500 MG, QD, ORAL 3000 MG. QD, ORAL UNK, ORAL 500 MG, DAILY
     Route: 048
     Dates: start: 20071205, end: 20091001
  8. EXJADE [Suspect]
     Indication: IRON OVERLOAD
     Dosage: 2500 MG, QD, ORAL 3000 MG. QD, ORAL UNK, ORAL 500 MG, DAILY
     Route: 048
     Dates: start: 20071205, end: 20091001
  9. EXJADE [Suspect]
     Indication: HAEMOCHROMATOSIS
     Dosage: 2500 MG, QD, ORAL 3000 MG. QD, ORAL UNK, ORAL 500 MG, DAILY
     Route: 048
     Dates: start: 20091210, end: 20100113
  10. EXJADE [Suspect]
     Indication: IRON OVERLOAD
     Dosage: 2500 MG, QD, ORAL 3000 MG. QD, ORAL UNK, ORAL 500 MG, DAILY
     Route: 048
     Dates: start: 20091210, end: 20100113
  11. EXJADE [Suspect]
     Indication: HAEMOCHROMATOSIS
     Dosage: 2500 MG, QD, ORAL 3000 MG. QD, ORAL UNK, ORAL 500 MG, DAILY
     Route: 048
     Dates: start: 20091115
  12. EXJADE [Suspect]
     Indication: IRON OVERLOAD
     Dosage: 2500 MG, QD, ORAL 3000 MG. QD, ORAL UNK, ORAL 500 MG, DAILY
     Route: 048
     Dates: start: 20091115
  13. OXYCODONE AND ACETAMINOPHEN [Concomitant]
  14. AZACITIDINE [Concomitant]
  15. AMBIEN [Concomitant]
  16. TRAMADOL HCL [Concomitant]
  17. LEXAPRO [Concomitant]
  18. TEMAZEPAM [Concomitant]

REACTIONS (23)
  - RED BLOOD CELL COUNT DECREASED [None]
  - RED CELL DISTRIBUTION WIDTH INCREASED [None]
  - BLOOD UREA INCREASED [None]
  - MONOCYTE COUNT INCREASED [None]
  - BLOOD POTASSIUM DECREASED [None]
  - ABNORMAL FAECES [None]
  - DECREASED APPETITE [None]
  - PALLOR [None]
  - DEHYDRATION [None]
  - ASTHENIA [None]
  - HAEMATOCRIT DECREASED [None]
  - MYELODYSPLASTIC SYNDROME [None]
  - GASTROINTESTINAL HAEMORRHAGE [None]
  - GLOMERULAR FILTRATION RATE INCREASED [None]
  - RENAL FAILURE CHRONIC [None]
  - HAEMOGLOBIN DECREASED [None]
  - FLUID INTAKE REDUCED [None]
  - HAEMATOCHEZIA [None]
  - PLATELET COUNT DECREASED [None]
  - MOVEMENT DISORDER [None]
  - FATIGUE [None]
  - METAMYELOCYTE COUNT INCREASED [None]
  - RENAL FAILURE [None]
